FAERS Safety Report 9977821 (Version 1)
Quarter: 2014Q1

REPORT INFORMATION
  Report Type: Report from Study
  Country: US (occurrence: US)
  Receive Date: 20140306
  Receipt Date: 20140306
  Transmission Date: 20141002
  Serious: No
  Sender: FDA-Public Use
  Company Number: US-ABBVIE-13P-163-1163282-00

PATIENT
  Age: 48 Year
  Sex: Male

DRUGS (13)
  1. HUMIRA [Suspect]
     Indication: PSORIASIS
     Dates: start: 201310
  2. ZANAFLEX [Concomitant]
     Indication: MUSCLE SPASMS
  3. FLEXERIL [Concomitant]
     Indication: MUSCLE SPASMS
  4. VALIUM [Concomitant]
     Indication: MUSCLE SPASMS
  5. OXYCONTIN [Concomitant]
     Indication: BACK PAIN
  6. OXYCONTIN [Concomitant]
     Indication: NECK PAIN
  7. DILAUDID [Concomitant]
     Indication: BACK PAIN
     Dosage: AS NEEDED
  8. DILAUDID [Concomitant]
     Indication: NECK PAIN
  9. PROMETHAZINE [Concomitant]
     Indication: NAUSEA
  10. METFORMIN [Concomitant]
     Indication: HEPATIC FUNCTION ABNORMAL
  11. PROBIOTIC [Concomitant]
     Indication: PRODUCT USED FOR UNKNOWN INDICATION
  12. IBUPROFEN [Concomitant]
     Indication: ARTHRITIS
     Dosage: 2 CAPSULE DAILY; TAKES IT ONCE IN A BLUE MOON
  13. BAYER ASPIRIN [Concomitant]
     Indication: PRODUCT USED FOR UNKNOWN INDICATION
     Dosage: LOW DOSE DAILY

REACTIONS (1)
  - Inappropriate schedule of drug administration [Unknown]
